FAERS Safety Report 18434949 (Version 1)
Quarter: 2020Q4

REPORT INFORMATION
  Report Type: Spontaneous
  Country: IT (occurrence: IT)
  Receive Date: 20201028
  Receipt Date: 20201028
  Transmission Date: 20210114
  Serious: Yes (Other)
  Sender: FDA-Public Use
  Company Number: IT-LUPIN PHARMACEUTICALS INC.-2020-07855

PATIENT
  Age: 71 Year
  Sex: Male

DRUGS (7)
  1. BARICITINIB. [Concomitant]
     Active Substance: BARICITINIB
     Indication: COVID-19
     Dosage: 4 MILLIGRAM, QD, AS A RESCUE THERAPY
     Route: 048
  2. SARILUMAB [Concomitant]
     Active Substance: SARILUMAB
     Indication: COVID-19
     Dosage: FIRST DOSE FOLLOWED BY SECOND DOSE 3 DAYS AFTER ADMINISTRATION OF FIRST DOSE
     Route: 042
  3. AZITHROMYCIN ANHYDROUS. [Suspect]
     Active Substance: AZITHROMYCIN ANHYDROUS
     Indication: COVID-19 PNEUMONIA
     Dosage: 500 MILLIGRAM, QD
     Route: 048
  4. ENOXAPARIN SODIUM. [Concomitant]
     Active Substance: ENOXAPARIN SODIUM
     Indication: ANTICOAGULANT THERAPY
     Dosage: AT THERAPEUTIC DOSAGE
     Route: 058
  5. LOPINAVIR/RITONAVIR [Concomitant]
     Active Substance: LOPINAVIR\RITONAVIR
     Indication: COVID-19
     Dosage: UNK, QD
     Route: 048
  6. SARILUMAB [Concomitant]
     Active Substance: SARILUMAB
     Dosage: FIRST DOSE FOLLOWED BY SECOND DOSE 3 DAYS AFTER ADMINISTRATION OF FIRST DOSE
     Route: 042
  7. HYDROXYCHLOROQUINE [Suspect]
     Active Substance: HYDROXYCHLOROQUINE
     Indication: COVID-19
     Dosage: 400 MILLIGRAM, QD
     Route: 048

REACTIONS (2)
  - Off label use [Unknown]
  - Therapeutic product effect incomplete [Unknown]
